FAERS Safety Report 9577700 (Version 1)
Quarter: 2013Q4

REPORT INFORMATION
  Report Type: Spontaneous
  Country: US (occurrence: US)
  Receive Date: 20131001
  Receipt Date: 20131001
  Transmission Date: 20140711
  Serious: No
  Sender: FDA-Public Use
  Company Number: US-AMGEN-USASP2013008987

PATIENT
  Age: 15 Year
  Sex: Female

DRUGS (4)
  1. ENBREL [Suspect]
     Indication: JUVENILE IDIOPATHIC ARTHRITIS
     Dosage: 50 MG, QWK
     Dates: start: 20120801
  2. METHOTREXATE [Concomitant]
     Dosage: 12.5 OR 17.5 MG, QWK
     Route: 048
     Dates: start: 20101201, end: 201112
  3. ARAVA [Concomitant]
     Dosage: 20 MG, QD
     Route: 048
     Dates: start: 201208
  4. NAPROXEN [Concomitant]
     Dosage: 375 MG, BID
     Route: 048
     Dates: start: 1999

REACTIONS (6)
  - Joint range of motion decreased [Not Recovered/Not Resolved]
  - Rhinorrhoea [Recovered/Resolved]
  - Protein urine present [Recovered/Resolved]
  - Blood urine present [Recovered/Resolved]
  - Knee deformity [Not Recovered/Not Resolved]
  - Skin atrophy [Not Recovered/Not Resolved]
